FAERS Safety Report 6509741-3 (Version None)
Quarter: 2009Q4

REPORT INFORMATION
  Report Type: 
  Country: None (occurrence: None)
  Receive Date: 20091221
  Receipt Date: 20091221
  Transmission Date: 20100525
  Serious: No
  Sender: FDA-Public Use
  Company Number: None

PATIENT
  Age: 76 Year
  Sex: Male
  Weight: 44.05 kg

DRUGS (1)
  1. NOREPINEPHRINE [Suspect]
     Indication: SURGERY
     Dosage: 15 MCG OTHER IV
     Route: 042
     Dates: start: 20081114, end: 20081117

REACTIONS (3)
  - ATRIAL FIBRILLATION [None]
  - PALPITATIONS [None]
  - TROPONIN I INCREASED [None]
